FAERS Safety Report 5389346-0 (Version None)
Quarter: 2007Q3

REPORT INFORMATION
  Report Type: 
  Country: None (occurrence: None)
  Receive Date: 20070713
  Receipt Date: 20070713
  Transmission Date: 20080115
  Serious: Yes (Other)
  Sender: FDA-Public Use
  Company Number: None

PATIENT
  Sex: Male
  Weight: 85.5 kg

DRUGS (9)
  1. TEMOZOLOMIDE [Suspect]
     Dosage: 1320 MG
  2. ASPIRIN [Concomitant]
  3. AVELOX [Concomitant]
  4. DEXAMETHASONE 0.5MG TAB [Concomitant]
  5. KEPPRA [Concomitant]
  6. LISINOPRIL [Concomitant]
  7. LOPRESSOR [Concomitant]
  8. NEXIUM [Concomitant]
  9. ZOFRAN [Concomitant]

REACTIONS (6)
  - MULTI-ORGAN FAILURE [None]
  - NEUTROPENIA [None]
  - PNEUMONIA PNEUMOCOCCAL [None]
  - RENAL FAILURE ACUTE [None]
  - RESPIRATORY FAILURE [None]
  - SEPTIC SHOCK [None]
